FAERS Safety Report 25681554 (Version 1)
Quarter: 2025Q3

REPORT INFORMATION
  Report Type: Spontaneous
  Country: US (occurrence: US)
  Receive Date: 20250814
  Receipt Date: 20250814
  Transmission Date: 20251020
  Serious: Yes (Death, Other)
  Sender: RANBAXY
  Company Number: US-SUN PHARMACEUTICAL INDUSTRIES LTD-2025R1-522558

PATIENT
  Age: 65 Year
  Sex: Female

DRUGS (2)
  1. BOSENTAN [Suspect]
     Active Substance: BOSENTAN
     Indication: Pulmonary hypertension
     Route: 065
  2. HEPARIN [Suspect]
     Active Substance: HEPARIN SODIUM
     Indication: Anticoagulant therapy
     Route: 065

REACTIONS (4)
  - Condition aggravated [Fatal]
  - Acute myocardial infarction [Fatal]
  - Hypotension [Fatal]
  - Arrhythmia [Fatal]
